FAERS Safety Report 4709904-3 (Version None)
Quarter: 2005Q3

REPORT INFORMATION
  Report Type: 
  Country: None (occurrence: None)
  Receive Date: 20050708
  Receipt Date: 20050701
  Transmission Date: 20060218
  Serious: Yes (Hospitalization)
  Sender: FDA-Public Use
  Company Number: US-SANOFI-SYNTHELABO-A03200501990

PATIENT
  Sex: Male
  Weight: 71.2 kg

DRUGS (2)
  1. ELOXATIN [Suspect]
     Indication: COLON CANCER METASTATIC
     Route: 042
     Dates: start: 20050501, end: 20050501
  2. XELODA [Concomitant]
     Dosage: UNK
     Route: 048

REACTIONS (3)
  - ABDOMINAL DISTENSION [None]
  - HICCUPS [None]
  - OESOPHAGEAL SPASM [None]
